FAERS Safety Report 4308065-2 (Version None)
Quarter: 2004Q1

REPORT INFORMATION
  Report Type: 
  Country: None (occurrence: None)
  Receive Date: 20040301
  Receipt Date: 20030423
  Transmission Date: 20041129
  Serious: No
  Sender: FDA-Public Use
  Company Number: US-BRISTOL-MYERS SQUIBB COMPANY-12252060

PATIENT
  Age: 62 Year
  Sex: Female
  Weight: 82 kg

DRUGS (11)
  1. GLUCOPHAGE [Suspect]
     Indication: DIABETES MELLITUS
     Dosage: DURATION OF THERAPY:  ^3-4 YEARS^
     Route: 048
     Dates: end: 20030411
  2. PRANDIN [Concomitant]
  3. LANOXIN [Concomitant]
  4. TRICOR [Concomitant]
  5. LASIX [Concomitant]
  6. CELEBREX [Concomitant]
  7. ATENOLOL [Concomitant]
  8. ASPIRIN [Concomitant]
  9. KLOR-CON [Concomitant]
  10. LESCOL [Concomitant]
  11. COZAAR [Concomitant]

REACTIONS (5)
  - CHEST PAIN [None]
  - DYSPEPSIA [None]
  - DYSPNOEA EXERTIONAL [None]
  - HEADACHE [None]
  - NAUSEA [None]
